FAERS Safety Report 7611420-6 (Version None)
Quarter: 2011Q3

REPORT INFORMATION
  Report Type: 
  Country: None (occurrence: None)
  Receive Date: 20110715
  Receipt Date: 20110707
  Transmission Date: 20111222
  Serious: Yes (Life-Threatening, Hospitalization)
  Sender: FDA-Public Use
  Company Number: GB-ROCHE-788465

PATIENT
  Age: 80 Year
  Sex: Male

DRUGS (11)
  1. FLUOROURACIL [Concomitant]
     Route: 042
     Dates: start: 20110330
  2. GLICLAZIDE [Concomitant]
     Route: 048
  3. AVASTIN [Suspect]
     Route: 042
     Dates: start: 20110330, end: 20110330
  4. ASPIRIN [Concomitant]
     Route: 048
  5. METFORMIN HCL [Concomitant]
     Route: 048
  6. DEXAMETHASONE [Concomitant]
     Route: 048
     Dates: start: 20110330, end: 20110402
  7. METOCLOPRAMIDE [Concomitant]
  8. AVASTIN [Suspect]
     Route: 042
     Dates: start: 20110330
  9. IRINOTECAN HCL [Concomitant]
     Route: 042
     Dates: start: 20110330
  10. LOPERAMIDE [Concomitant]
     Route: 048
     Dates: start: 20110330
  11. LEUCOVORIN CALCIUM [Concomitant]
     Route: 042
     Dates: start: 20110330

REACTIONS (5)
  - DIVERTICULUM INTESTINAL [None]
  - HAEMORRHAGE [None]
  - GASTRIC ULCER [None]
  - GASTROINTESTINAL ULCER [None]
  - DUODENAL ULCER [None]
